FAERS Safety Report 7455588-3 (Version None)
Quarter: 2011Q2

REPORT INFORMATION
  Report Type: 
  Country: None (occurrence: None)
  Receive Date: 20110503
  Receipt Date: 20110419
  Transmission Date: 20111010
  Serious: Yes (Death)
  Sender: FDA-Public Use
  Company Number: DE-ROCHE-773462

PATIENT
  Sex: Male
  Weight: 70 kg

DRUGS (3)
  1. BEVACIZUMAB [Suspect]
     Route: 042
     Dates: start: 20101004, end: 20101207
  2. CISPLATIN [Concomitant]
     Dates: start: 20101004, end: 20101207
  3. VINORELBINE [Concomitant]
     Dates: start: 20101004, end: 20101207

REACTIONS (1)
  - NO THERAPEUTIC RESPONSE [None]
